FAERS Safety Report 6686652-4 (Version None)
Quarter: 2010Q2

REPORT INFORMATION
  Report Type: 
  Country: None (occurrence: None)
  Receive Date: 20100414
  Receipt Date: 20100330
  Transmission Date: 20101027
  Serious: Yes (Other)
  Sender: FDA-Public Use
  Company Number: US-1181425

PATIENT
  Sex: Male

DRUGS (1)
  1. NEOMYCIN AND POLYMXIN B SULFATES AND HYDROCORTISONE [Suspect]
     Indication: TYMPANIC MEMBRANE PERFORATION
     Dosage: (3 GTT TID AURICULAR (OTIC))
     Route: 001
     Dates: start: 20100326

REACTIONS (1)
  - DEAFNESS UNILATERAL [None]
